FAERS Safety Report 5380673-X (Version None)
Quarter: 2007Q3

REPORT INFORMATION
  Report Type: 
  Country: None (occurrence: None)
  Receive Date: 20070706
  Receipt Date: 20070702
  Transmission Date: 20080115
  Serious: Yes (Other)
  Sender: FDA-Public Use
  Company Number: A0659798A

PATIENT
  Age: 64 Year
  Sex: Female

DRUGS (1)
  1. COMMIT [Suspect]
     Indication: SMOKING CESSATION THERAPY
     Route: 002
     Dates: start: 20070601, end: 20070101

REACTIONS (11)
  - CHOKING [None]
  - DIZZINESS [None]
  - DYSPHAGIA [None]
  - HICCUPS [None]
  - HYPERSENSITIVITY [None]
  - NAUSEA [None]
  - OESOPHAGEAL DISCOMFORT [None]
  - ORAL PAIN [None]
  - PARAESTHESIA ORAL [None]
  - STOMATITIS [None]
  - SWOLLEN TONGUE [None]
